FAERS Safety Report 13149728 (Version 11)
Quarter: 2017Q4

REPORT INFORMATION
  Report Type: Spontaneous
  Country: US (occurrence: US)
  Receive Date: 20170125
  Receipt Date: 20171212
  Transmission Date: 20180320
  Serious: Yes (Other)
  Sender: FDA-Public Use
  Company Number: US-JNJFOC-20170115659

PATIENT
  Sex: Male
  Weight: 77.11 kg

DRUGS (5)
  1. INVEGA SUSTENNA [Suspect]
     Active Substance: PALIPERIDONE PALMITATE
     Indication: SCHIZOPHRENIA
     Dosage: IN APRIL OR MAY 2016
     Route: 030
     Dates: start: 2016, end: 2016
  2. INVEGA SUSTENNA [Suspect]
     Active Substance: PALIPERIDONE PALMITATE
     Indication: SCHIZOPHRENIA
     Route: 030
     Dates: start: 201711
  3. INVEGA SUSTENNA [Suspect]
     Active Substance: PALIPERIDONE PALMITATE
     Indication: SCHIZOPHRENIA
     Route: 030
     Dates: start: 2017, end: 201711
  4. INVEGA SUSTENNA [Suspect]
     Active Substance: PALIPERIDONE PALMITATE
     Indication: SCHIZOPHRENIA
     Route: 030
     Dates: start: 2016
  5. INVEGA [Suspect]
     Active Substance: PALIPERIDONE
     Indication: SCHIZOPHRENIA
     Dosage: 9 MG IN THE MORNING AND 3 MG AT NIGHT IN APRIL OR MAY 2016
     Route: 048
     Dates: start: 2016, end: 2016

REACTIONS (19)
  - Cognitive disorder [Unknown]
  - Apathy [Not Recovered/Not Resolved]
  - Social anxiety disorder [Unknown]
  - Feeling abnormal [Not Recovered/Not Resolved]
  - Loss of personal independence in daily activities [Unknown]
  - Weight increased [Not Recovered/Not Resolved]
  - Mental impairment [Not Recovered/Not Resolved]
  - Sluggishness [Not Recovered/Not Resolved]
  - Mental status changes [Not Recovered/Not Resolved]
  - Social avoidant behaviour [Not Recovered/Not Resolved]
  - Insomnia [Unknown]
  - Antisocial behaviour [Unknown]
  - Thinking abnormal [Not Recovered/Not Resolved]
  - Libido decreased [Unknown]
  - Erectile dysfunction [Unknown]
  - Abnormal behaviour [Not Recovered/Not Resolved]
  - Communication disorder [Not Recovered/Not Resolved]
  - Lethargy [Unknown]
  - Emotional poverty [Not Recovered/Not Resolved]

NARRATIVE: CASE EVENT DATE: 2016
